FAERS Safety Report 15760955 (Version 2)
Quarter: 2019Q1

REPORT INFORMATION
  Report Type: Spontaneous
  Country: US (occurrence: US)
  Receive Date: 20181226
  Receipt Date: 20190315
  Transmission Date: 20190417
  Serious: Yes (Other)
  Sender: FDA-Public Use
  Company Number: US-PFIZER INC-2018528692

PATIENT
  Age: 67 Year
  Sex: Female
  Weight: 53 kg

DRUGS (5)
  1. XELJANZ XR [Suspect]
     Active Substance: TOFACITINIB CITRATE
     Dosage: 11 MG, 1X/DAY
     Route: 048
     Dates: start: 20190227
  2. XELJANZ XR [Suspect]
     Active Substance: TOFACITINIB CITRATE
     Indication: RHEUMATOID ARTHRITIS
     Dosage: 11 MG, 1X/DAY
     Route: 048
     Dates: start: 2017, end: 20190220
  3. REMICADE [Suspect]
     Active Substance: INFLIXIMAB
     Route: 042
  4. LEVOTHYROXINE. [Concomitant]
     Active Substance: LEVOTHYROXINE
     Dosage: 112 UG, DAILY
     Route: 048
  5. LEVOTHYROXINE. [Concomitant]
     Active Substance: LEVOTHYROXINE
     Indication: HYPOTHYROIDISM
     Dosage: UNK UNK, 1X/DAY (HALF OF 137MCG (AROUND 67 OR 68MCG), TABLET))
     Route: 048

REACTIONS (8)
  - Asthenia [Unknown]
  - Sinusitis [Unknown]
  - Renal impairment [Unknown]
  - Urinary tract infection [Unknown]
  - Bronchitis [Unknown]
  - Liver function test abnormal [Unknown]
  - White blood cell count decreased [Unknown]
  - Influenza [Unknown]

NARRATIVE: CASE EVENT DATE: 20190217
